FAERS Safety Report 11168302 (Version 1)
Quarter: 2015Q2

REPORT INFORMATION
  Report Type: Spontaneous
  Country: FR (occurrence: FR)
  Receive Date: 20150605
  Receipt Date: 20150605
  Transmission Date: 20150821
  Serious: Yes (Hospitalization, Other)
  Sender: FDA-Public Use
  Company Number: FR-ASTRAZENECA-2015SE53459

PATIENT
  Age: 929 Month
  Sex: Female

DRUGS (14)
  1. COUMADINE [Concomitant]
     Active Substance: WARFARIN SODIUM
  2. SEVIKAR [Suspect]
     Active Substance: AMLODIPINE BESYLATE\OLMESARTAN MEDOXOMIL
     Route: 048
     Dates: end: 20150414
  3. TARDYFERON [Concomitant]
     Active Substance: FERROUS SULFATE\FOLIC ACID
  4. MIANSERINE [Suspect]
     Active Substance: MIANSERIN HYDROCHLORIDE
     Route: 048
     Dates: end: 2015
  5. COSOPT [Concomitant]
     Active Substance: DORZOLAMIDE HYDROCHLORIDE\TIMOLOL MALEATE
  6. CORDARONE [Suspect]
     Active Substance: AMIODARONE HYDROCHLORIDE
     Route: 048
     Dates: end: 20150414
  7. COLCHICINE. [Concomitant]
     Active Substance: COLCHICINE
  8. INEXIUM [Suspect]
     Active Substance: ESOMEPRAZOLE
     Route: 048
  9. CARDENSIEL [Concomitant]
     Active Substance: BISOPROLOL FUMARATE
  10. IMOVANE [Concomitant]
     Active Substance: ZOPICLONE
  11. DOLIPRANE [Concomitant]
     Active Substance: ACETAMINOPHEN
  12. MIANSERINE [Suspect]
     Active Substance: MIANSERIN HYDROCHLORIDE
     Route: 048
     Dates: start: 2015, end: 20150414
  13. SPECIAFOLDINE [Concomitant]
     Active Substance: FOLIC ACID
  14. TAHOR [Concomitant]
     Active Substance: ATORVASTATIN CALCIUM

REACTIONS (15)
  - Pleural effusion [Unknown]
  - Hyponatraemia [Recovered/Resolved]
  - Blood potassium decreased [Recovered/Resolved]
  - Oxygen saturation decreased [Unknown]
  - C-reactive protein increased [Unknown]
  - Dehydration [Recovered/Resolved]
  - Hypophagia [Unknown]
  - Confusional state [Unknown]
  - Hypotension [Unknown]
  - Influenza [Unknown]
  - Blood creatinine decreased [Unknown]
  - Blood chloride decreased [Recovered/Resolved]
  - Somnolence [Unknown]
  - Oedema peripheral [Unknown]
  - Depressed level of consciousness [Unknown]

NARRATIVE: CASE EVENT DATE: 201501
